FAERS Safety Report 5577633-2 (Version None)
Quarter: 2007Q4

REPORT INFORMATION
  Report Type: 
  Country: None (occurrence: None)
  Receive Date: 20071231
  Receipt Date: 20071220
  Transmission Date: 20080405
  Serious: Yes (Disabling, Other)
  Sender: FDA-Public Use
  Company Number: PHBS2007JP18404

PATIENT
  Age: 54 Year
  Sex: Female
  Weight: 46 kg

DRUGS (6)
  1. VOLTAREN [Suspect]
     Indication: PYREXIA
     Dosage: 25 MG/DAY
     Route: 054
     Dates: start: 20060514, end: 20060515
  2. DICLOFENAC SODIUM [Suspect]
     Indication: HEADACHE
     Dosage: 75 MG/DAY
     Route: 048
     Dates: start: 20060512, end: 20060512
  3. RANITAC [Concomitant]
     Indication: ABDOMINAL PAIN UPPER
     Dosage: 225 MG/DAY
     Route: 048
     Dates: start: 20060512, end: 20060512
  4. DOMPERIDONE [Concomitant]
     Indication: NAUSEA
     Dosage: 30 MG/DAY
     Route: 048
     Dates: start: 20060512, end: 20060512
  5. MINOMYCIN [Concomitant]
     Dosage: 50 MG/DAY
     Route: 048
     Dates: start: 20060511, end: 20060511
  6. KETOTIFEN FUMARATE [Concomitant]
     Route: 048
     Dates: start: 20060511, end: 20060511

REACTIONS (13)
  - ALANINE AMINOTRANSFERASE INCREASED [None]
  - ASPARTATE AMINOTRANSFERASE INCREASED [None]
  - BLOOD BILIRUBIN INCREASED [None]
  - C-REACTIVE PROTEIN INCREASED [None]
  - CONJUNCTIVITIS [None]
  - CORNEAL DISORDER [None]
  - EYE PAIN [None]
  - GAMMA-GLUTAMYLTRANSFERASE INCREASED [None]
  - LACRIMATION DECREASED [None]
  - LIVER DISORDER [None]
  - OCULAR HYPERAEMIA [None]
  - STEVENS-JOHNSON SYNDROME [None]
  - VISION BLURRED [None]
